FAERS Safety Report 8270907-6 (Version None)
Quarter: 2012Q2

REPORT INFORMATION
  Report Type: 
  Country: None (occurrence: None)
  Receive Date: 20120410
  Receipt Date: 20120405
  Transmission Date: 20120825
  Serious: No
  Sender: FDA-Public Use
  Company Number: US-PFIZER INC-2012078499

PATIENT
  Sex: Male
  Weight: 71.655 kg

DRUGS (4)
  1. LYRICA [Suspect]
     Dosage: 75MG, UNK
     Dates: end: 20120403
  2. ADVAIR DISKUS 100/50 [Concomitant]
     Indication: CHRONIC OBSTRUCTIVE PULMONARY DISEASE
     Dosage: 500MCG/50MCG, 2X/DAY
     Dates: start: 20120101
  3. LYRICA [Suspect]
     Indication: NEUROPATHY PERIPHERAL
     Dosage: 300 MG, 2X/DAY
     Dates: start: 20070101
  4. PRILOSEC [Concomitant]
     Indication: GASTROOESOPHAGEAL REFLUX DISEASE
     Dosage: 20 MG, DAILY
     Dates: start: 20080101

REACTIONS (2)
  - PAIN [None]
  - SLEEP DISORDER [None]
